FAERS Safety Report 19057665 (Version 5)
Quarter: 2022Q3

REPORT INFORMATION
  Report Type: Spontaneous
  Country: US (occurrence: US)
  Receive Date: 20210325
  Receipt Date: 20220829
  Transmission Date: 20221026
  Serious: No
  Sender: FDA-Public Use
  Company Number: US-PFIZER INC-2019271673

PATIENT
  Age: 54 Year
  Sex: Female

DRUGS (7)
  1. SUTENT [Suspect]
     Active Substance: SUNITINIB MALATE
     Indication: Gastrointestinal stromal tumour
     Dosage: 2 WEEKS ON AND 1 WEEK OFF
  2. SUTENT [Suspect]
     Active Substance: SUNITINIB MALATE
     Dosage: 25 MG, ALTERNATE DAY
  3. SUTENT [Suspect]
     Active Substance: SUNITINIB MALATE
     Dosage: 1 DAILY FOR 14 DAY 1-14 OF A 21 DAY CYCLE
     Route: 048
  4. SUTENT [Suspect]
     Active Substance: SUNITINIB MALATE
     Dosage: DAILY FOR 2 WEEKS, OFF FOR 1 WEEK
     Route: 048
  5. SUTENT [Suspect]
     Active Substance: SUNITINIB MALATE
     Dosage: 25 MG
  6. SUTENT [Suspect]
     Active Substance: SUNITINIB MALATE
     Dosage: TWO CAPSULE DAILY FOR 14 DAYS THEN 7 DAYS OFF
  7. SUTENT [Suspect]
     Active Substance: SUNITINIB MALATE
     Dosage: 2 (12.5 MG) DAILY FOR 14 DAYS; QTY: 28; DAYS 1-14, THEN 7 DAYS OFF
     Route: 048

REACTIONS (1)
  - Neoplasm progression [Unknown]
